FAERS Safety Report 9271676 (Version 1)
Quarter: 2013Q2

REPORT INFORMATION
  Report Type: Report from Study
  Country: GB (occurrence: GB)
  Receive Date: 20130506
  Receipt Date: 20130506
  Transmission Date: 20140414
  Serious: Yes (Death)
  Sender: FDA-Public Use
  Company Number: US-ASTELLAS-2013US004793

PATIENT
  Sex: 0

DRUGS (3)
  1. ERLOTINIB TABLET [Suspect]
     Indication: NEOPLASM
     Dosage: 75 MG, UNKNOWN/D
     Route: 065
  2. GEMCITABINE /01215702/ [Suspect]
     Indication: NEOPLASM
     Dosage: 1000 MG/M2, UNKNOWN/D
     Route: 065
  3. MONOCLONAL ANTIBODIES [Suspect]
     Indication: NEOPLASM
     Dosage: 6 MG/KG, UNKNOWN/D
     Route: 042

REACTIONS (1)
  - Stomatitis [Fatal]
